FAERS Safety Report 7318912-8 (Version None)
Quarter: 2011Q1

REPORT INFORMATION
  Report Type: 
  Country: None (occurrence: None)
  Receive Date: 20110228
  Receipt Date: 20110214
  Transmission Date: 20110831
  Serious: Yes (Other)
  Sender: FDA-Public Use
  Company Number: US-ELI_LILLY_AND_COMPANY-US201101000364

PATIENT
  Sex: Male
  Weight: 117.91 kg

DRUGS (6)
  1. BYETTA [Suspect]
     Dosage: 10 UG, UNKNOWN
     Route: 058
  2. BYETTA [Suspect]
     Indication: TYPE 2 DIABETES MELLITUS
     Dosage: 5 UG, 2/D
     Route: 058
     Dates: start: 20100706
  3. BYETTA [Suspect]
     Dosage: 10 UG, DAILY (1/D)
     Route: 058
     Dates: start: 20100831
  4. BYETTA [Suspect]
     Dosage: 10 UG, 2/D
     Route: 058
  5. PEPTO-BISMOL [Concomitant]
  6. BYETTA [Suspect]
     Dosage: 10 UG, DAILY (1/D)
     Route: 058

REACTIONS (8)
  - CEREBROVASCULAR ACCIDENT [None]
  - BLINDNESS UNILATERAL [None]
  - CONSTIPATION [None]
  - WEIGHT DECREASED [None]
  - NAUSEA [None]
  - DECREASED APPETITE [None]
  - FATIGUE [None]
  - DIZZINESS [None]
